FAERS Safety Report 19728763 (Version 1)
Quarter: 2021Q3

REPORT INFORMATION
  Report Type: Spontaneous
  Country: US (occurrence: US)
  Receive Date: 20210820
  Receipt Date: 20210820
  Transmission Date: 20211014
  Serious: No
  Sender: FDA-Public Use
  Company Number: US-G1-000303

PATIENT
  Sex: Female

DRUGS (2)
  1. COSELA [Suspect]
     Active Substance: TRILACICLIB DIHYDROCHLORIDE
     Indication: PRODUCT USED FOR UNKNOWN INDICATION
  2. 1329006 (GLOBALC3SEP20): ZOFRAN [Concomitant]

REACTIONS (1)
  - Dyspnoea [Unknown]
